FAERS Safety Report 4398387-1 (Version None)
Quarter: 2004Q3

REPORT INFORMATION
  Report Type: 
  Country: None (occurrence: None)
  Receive Date: 20040715
  Receipt Date: 20040709
  Transmission Date: 20050211
  Serious: Yes (Hospitalization)
  Sender: FDA-Public Use
  Company Number: SE-MERCK-0407SWE00010

PATIENT
  Age: 58 Year
  Sex: Female

DRUGS (14)
  1. ACETYLCYSTEINE [Suspect]
     Indication: ASTHMA
     Route: 048
     Dates: start: 20010528, end: 20020625
  2. ALBUTEROL SULFATE [Concomitant]
     Route: 065
  3. ESTROGENS, CONJUGATED [Concomitant]
     Route: 065
  4. FLUTICASONE PROPIONATE [Concomitant]
     Route: 065
  5. FORMOTEROL FUMARATE [Concomitant]
     Route: 065
  6. IPRATROPIUM BROMIDE [Concomitant]
     Route: 065
  7. ISONIAZID [Concomitant]
     Route: 065
  8. LEVOTHYROXINE SODIUM [Concomitant]
     Route: 065
  9. LORATADINE [Concomitant]
     Route: 065
  10. MOMETASONE FUROATE [Concomitant]
     Route: 065
  11. SINGULAIR [Suspect]
     Indication: ASTHMA
     Route: 048
     Dates: start: 20010528, end: 20020625
  12. PYRIDOXINE [Concomitant]
     Route: 065
  13. RIFAMPIN [Concomitant]
     Route: 065
  14. ZOCOR [Concomitant]
     Route: 065

REACTIONS (6)
  - ARTERITIS [None]
  - EOSINOPHILIA [None]
  - NEURALGIA [None]
  - PARALYSIS [None]
  - RHINITIS [None]
  - VASCULITIS [None]
